FAERS Safety Report 14235502 (Version 5)
Quarter: 2018Q2

REPORT INFORMATION
  Report Type: Report from Study
  Country: GB (occurrence: GB)
  Receive Date: 20171129
  Receipt Date: 20180413
  Transmission Date: 20180711
  Serious: Yes (Hospitalization, Other)
  Sender: FDA-Public Use
  Company Number: GB-ROCHE-1657663

PATIENT
  Age: 71 Year
  Sex: Male

DRUGS (5)
  1. CODEINE PHOSPHATE [Concomitant]
     Active Substance: CODEINE PHOSPHATE
     Indication: DIVERTICULITIS
  2. ESBRIET [Suspect]
     Active Substance: PIRFENIDONE
     Indication: IDIOPATHIC PULMONARY FIBROSIS
     Route: 048
     Dates: start: 20151028
  3. ESBRIET [Suspect]
     Active Substance: PIRFENIDONE
     Route: 048
  4. ESBRIET [Suspect]
     Active Substance: PIRFENIDONE
     Route: 048
  5. LANSOPRAZOLE. [Concomitant]
     Active Substance: LANSOPRAZOLE

REACTIONS (37)
  - Sputum abnormal [Unknown]
  - Fatigue [Not Recovered/Not Resolved]
  - Constipation [Unknown]
  - Hallucination [Unknown]
  - Heart rate increased [Recovered/Resolved]
  - Urinary tract infection [Unknown]
  - Feeling abnormal [Unknown]
  - Skin discolouration [Unknown]
  - Oxygen consumption increased [Unknown]
  - Diverticulitis [Unknown]
  - Gait inability [Not Recovered/Not Resolved]
  - Oxygen saturation decreased [Unknown]
  - Lower respiratory tract infection [Unknown]
  - Cough [Not Recovered/Not Resolved]
  - Decreased appetite [Not Recovered/Not Resolved]
  - Rhinorrhoea [Not Recovered/Not Resolved]
  - Nausea [Not Recovered/Not Resolved]
  - Dysgeusia [Not Recovered/Not Resolved]
  - Middle insomnia [Unknown]
  - Influenza like illness [Unknown]
  - Dyspnoea [Unknown]
  - Localised infection [Recovering/Resolving]
  - Erythema [Unknown]
  - Peripheral swelling [Unknown]
  - Rash [Unknown]
  - Malaise [Not Recovered/Not Resolved]
  - Joint swelling [Unknown]
  - Eating disorder [Unknown]
  - Body temperature increased [Unknown]
  - Cough [Not Recovered/Not Resolved]
  - Loss of personal independence in daily activities [Unknown]
  - Chest pain [Unknown]
  - Productive cough [Unknown]
  - Insomnia [Recovering/Resolving]
  - Pulmonary function test decreased [Not Recovered/Not Resolved]
  - Asthenia [Not Recovered/Not Resolved]
  - Feeling abnormal [Not Recovered/Not Resolved]

NARRATIVE: CASE EVENT DATE: 20151101
